FAERS Safety Report 8118842-8 (Version None)
Quarter: 2012Q1

REPORT INFORMATION
  Report Type: 
  Country: None (occurrence: None)
  Receive Date: 20120207
  Receipt Date: 20120131
  Transmission Date: 20120608
  Serious: Yes (Death)
  Sender: FDA-Public Use
  Company Number: US-ELI_LILLY_AND_COMPANY-US201112002223

PATIENT
  Sex: Male
  Weight: 57.143 kg

DRUGS (11)
  1. ONDANSETRON HCL [Concomitant]
  2. PHENERGAN [Concomitant]
  3. ATIVAN [Concomitant]
  4. ALIMTA [Suspect]
     Indication: LUNG NEOPLASM MALIGNANT
     Dosage: 500 MG/M2, Q 3WEEKS
     Dates: start: 20101021, end: 20101223
  5. VITAMIN B-12 [Concomitant]
     Dosage: 1000 MG, UNKNOWN
     Route: 042
     Dates: start: 20101018, end: 20101223
  6. SYMBICORT [Concomitant]
  7. NEXIUM [Concomitant]
  8. DURAGESIC-100 [Concomitant]
  9. LORTAB [Concomitant]
  10. MIRALAX [Concomitant]
  11. FOLIC ACID [Concomitant]
     Dosage: 1 MG, UNKNOWN
     Route: 048
     Dates: start: 20101018, end: 20101223

REACTIONS (1)
  - NEOPLASM PROGRESSION [None]
